FAERS Safety Report 18003791 (Version 2)
Quarter: 2020Q3

REPORT INFORMATION
  Report Type: Spontaneous
  Country: AU (occurrence: AU)
  Receive Date: 20200710
  Receipt Date: 20200817
  Transmission Date: 20201103
  Serious: Yes (Other)
  Sender: FDA-Public Use
  Company Number: AU-BEH-2020119813

PATIENT
  Age: 75 Year
  Sex: Male
  Weight: 115.2 kg

DRUGS (2)
  1. HIZENTRA [Suspect]
     Active Substance: HUMAN IMMUNOGLOBULIN G
     Indication: HYPOGAMMAGLOBULINAEMIA
     Dosage: 9 GRAM, QW
     Route: 058
     Dates: start: 20200417, end: 20200529
  2. VENETOCLAX. [Concomitant]
     Active Substance: VENETOCLAX
     Dosage: 600 MILLIGRAM
     Dates: start: 201401

REACTIONS (3)
  - Furuncle [Unknown]
  - Pustule [Unknown]
  - Injection site mass [Recovered/Resolved]
